FAERS Safety Report 6596186-3 (Version None)
Quarter: 2010Q1

REPORT INFORMATION
  Report Type: 
  Country: None (occurrence: None)
  Receive Date: 20100223
  Receipt Date: 20100216
  Transmission Date: 20100710
  Serious: Yes (Hospitalization)
  Sender: FDA-Public Use
  Company Number: JP-ROCHE-657419

PATIENT
  Age: 40 Year
  Sex: Male

DRUGS (2)
  1. COPEGUS [Suspect]
     Route: 048
  2. PEGASYS [Suspect]
     Route: 058

REACTIONS (1)
  - DELIRIUM [None]
